FAERS Safety Report 5605905-1 (Version None)
Quarter: 2008Q1

REPORT INFORMATION
  Report Type: 
  Country: None (occurrence: None)
  Receive Date: 20080129
  Receipt Date: 20080116
  Transmission Date: 20080703
  Serious: Yes (Other)
  Sender: FDA-Public Use
  Company Number: JP-ELI_LILLY_AND_COMPANY-JP200712002596

PATIENT
  Sex: Male
  Weight: 63 kg

DRUGS (9)
  1. GEMZAR [Suspect]
     Indication: PANCREATIC CARCINOMA
     Dosage: 1000 MG, OTHER
     Route: 042
     Dates: start: 20061003, end: 20071126
  2. BERIZYM [Concomitant]
     Dosage: 1 G, 3/D
     Route: 048
     Dates: start: 20060907
  3. GASMOTIN [Concomitant]
     Dosage: 5 MG, 3/D
     Route: 048
     Dates: start: 20060907
  4. URSO 250 [Concomitant]
     Dosage: 200 MG, 3/D
     Route: 048
     Dates: start: 20060907
  5. GASTER D [Concomitant]
     Dosage: 20 MG, 2/D
     Route: 048
     Dates: start: 20060907
  6. LAC B [Concomitant]
     Dosage: 1 G, 3/D
     Route: 048
     Dates: start: 20060914
  7. LEUCON [Concomitant]
     Dosage: 10 MG, 3/D
     Route: 048
     Dates: start: 20060926
  8. CEPHARANTHIN [Concomitant]
     Dosage: 1 MG, 3/D
     Route: 048
     Dates: start: 20060926
  9. NEUPOGEN [Concomitant]
     Indication: PROPHYLAXIS
     Dosage: 100 UG, UNKNOWN
     Route: 065
     Dates: start: 20070219

REACTIONS (7)
  - BLOOD CALCIUM DECREASED [None]
  - CARDIAC FAILURE CONGESTIVE [None]
  - HAEMOGLOBIN DECREASED [None]
  - NEUTROPHIL COUNT DECREASED [None]
  - OEDEMA [None]
  - PLEURAL EFFUSION [None]
  - WHITE BLOOD CELL COUNT DECREASED [None]
